FAERS Safety Report 5287288-2 (Version None)
Quarter: 2007Q1

REPORT INFORMATION
  Report Type: 
  Country: None (occurrence: None)
  Receive Date: 20070329
  Receipt Date: 20070316
  Transmission Date: 20070707
  Serious: Yes (Other)
  Sender: FDA-Public Use
  Company Number: 238432

PATIENT
  Age: 70 Year
  Sex: Male

DRUGS (2)
  1. LUCENTIS [Suspect]
     Indication: MACULAR DEGENERATION
     Dosage: 0.05 ML, , INTRAVITREAL
     Dates: start: 20070302
  2. VALACYCLOVIR HCL [Concomitant]

REACTIONS (2)
  - HERPES SIMPLEX OPHTHALMIC [None]
  - KERATITIS HERPETIC [None]
